FAERS Safety Report 20834058 (Version 1)
Quarter: 2022Q2

REPORT INFORMATION
  Report Type: Spontaneous
  Country: US (occurrence: US)
  Receive Date: 20220516
  Receipt Date: 20220516
  Transmission Date: 20220721
  Serious: No
  Sender: FDA-Public Use
  Company Number: US-ORGANON-O2205USA001146

PATIENT
  Age: 42 Year
  Sex: Male

DRUGS (2)
  1. REMERON [Suspect]
     Active Substance: MIRTAZAPINE
     Indication: Progressive multifocal leukoencephalopathy
     Dosage: UNK
     Route: 048
  2. IVIGLOB EX [Concomitant]
     Active Substance: HUMAN IMMUNOGLOBULIN G
     Dosage: EVERY MONTH FOR THE PAST 3 YEARS WITH A CD4 COUNT OF 242 COPIES/ML AND CD4/CD8 T CELL RATIO OF 0.7

REACTIONS (1)
  - Product use in unapproved indication [Unknown]
